FAERS Safety Report 8524524-0 (Version None)
Quarter: 2012Q3

REPORT INFORMATION
  Report Type: 
  Country: None (occurrence: None)
  Receive Date: 20120720
  Receipt Date: 20120710
  Transmission Date: 20120928
  Serious: Yes (Hospitalization)
  Sender: FDA-Public Use
  Company Number: US-ACTELION-A-US2012-63165

PATIENT

DRUGS (4)
  1. FLOLAN [Concomitant]
  2. TRACLEER [Suspect]
     Indication: PULMONARY ARTERIAL HYPERTENSION
     Dosage: UNK
     Route: 048
     Dates: start: 20080421
  3. LASIX [Concomitant]
  4. COUMADIN [Concomitant]

REACTIONS (6)
  - DYSPNOEA [None]
  - MYOCARDIAL INFARCTION [None]
  - FLUID RETENTION [None]
  - FATIGUE [None]
  - PULMONARY OEDEMA [None]
  - CHEST PAIN [None]
